FAERS Safety Report 8783334 (Version 1)
Quarter: 2012Q4

REPORT INFORMATION
  Report Type: 
  Country: US (occurrence: US)
  Receive Date: 20120913
  Receipt Date: 20120913
  Transmission Date: 20130627
  Serious: No
  Sender: FDA-Public Use
  Company Number: US-VERTEX PHARMACEUTICAL INC.-AE-2012-008347

PATIENT

DRUGS (8)
  1. INCIVEK [Suspect]
     Indication: HEPATITIS C
     Route: 048
     Dates: start: 20120318
  2. RIBAVIRIN [Concomitant]
     Indication: HEPATITIS C
     Route: 048
     Dates: start: 20120318
  3. PEGASYS [Concomitant]
     Indication: HEPATITIS C
     Route: 058
     Dates: start: 20120318
  4. FLUID PILL [Concomitant]
  5. PROSTIG [Concomitant]
  6. NEXIUM [Concomitant]
  7. LASIX [Concomitant]
  8. IBUPROFEN [Concomitant]

REACTIONS (3)
  - Drug dose omission [Recovered/Resolved]
  - Incorrect dose administered [Recovered/Resolved]
  - Swelling face [Recovered/Resolved]
